FAERS Safety Report 5308521-4 (Version None)
Quarter: 2007Q2

REPORT INFORMATION
  Report Type: 
  Country: None (occurrence: None)
  Receive Date: 20070426
  Receipt Date: 20070418
  Transmission Date: 20071010
  Serious: Yes (Hospitalization)
  Sender: FDA-Public Use
  Company Number: HQWYE618105MAR07

PATIENT
  Sex: Female

DRUGS (4)
  1. ENBREL [Suspect]
     Indication: RHEUMATOID ARTHRITIS
     Route: 058
     Dates: start: 20060610
  2. ENBREL [Suspect]
     Route: 058
     Dates: start: 20070320
  3. METHOTREXATE [Concomitant]
     Indication: RHEUMATOID ARTHRITIS
     Route: 048
     Dates: start: 20050530, end: 20060630
  4. METHOTREXATE [Concomitant]
     Route: 048
     Dates: start: 20060701

REACTIONS (1)
  - SUPRAVENTRICULAR EXTRASYSTOLES [None]
